FAERS Safety Report 8505612-1 (Version None)
Quarter: 2012Q3

REPORT INFORMATION
  Report Type: 
  Country: None (occurrence: None)
  Receive Date: 20120712
  Receipt Date: 20120704
  Transmission Date: 20120928
  Serious: Yes (Other)
  Sender: FDA-Public Use
  Company Number: JP-PFIZER INC-2012159923

PATIENT
  Age: 65 Year
  Sex: Male

DRUGS (2)
  1. LYRICA [Suspect]
     Dosage: 12.5 MG, UNK
     Route: 048
  2. LYRICA [Suspect]
     Indication: PAIN
     Dosage: 25 MG, 1X/DAY
     Route: 048

REACTIONS (4)
  - RENAL IMPAIRMENT [None]
  - COMA HEPATIC [None]
  - DIZZINESS [None]
  - BALANCE DISORDER [None]
